FAERS Safety Report 7723726-0 (Version None)
Quarter: 2011Q3

REPORT INFORMATION
  Report Type: 
  Country: None (occurrence: None)
  Receive Date: 20110901
  Receipt Date: 20110824
  Transmission Date: 20111222
  Serious: Yes (Life-Threatening)
  Sender: FDA-Public Use
  Company Number: US-CELGENEUS-163-21880-11082785

PATIENT
  Sex: Female

DRUGS (8)
  1. REVLIMID [Suspect]
     Dosage: 25 MILLIGRAM
     Route: 048
     Dates: start: 20110224
  2. FERROUS SULFATE TAB [Concomitant]
     Route: 065
  3. OXYCODONE HCL [Concomitant]
     Route: 065
  4. PERCOCET [Concomitant]
     Route: 065
  5. REVLIMID [Suspect]
     Dosage: 25 MILLIGRAM
     Route: 048
     Dates: start: 20110701
  6. ROBAXIN [Concomitant]
     Route: 065
  7. DIOVAN [Concomitant]
     Route: 065
  8. PROTONIX [Concomitant]
     Route: 065

REACTIONS (1)
  - MULTIPLE MYELOMA [None]
